FAERS Safety Report 5810823-X (Version None)
Quarter: 2008Q3

REPORT INFORMATION
  Report Type: 
  Country: None (occurrence: None)
  Receive Date: 20080710
  Receipt Date: 20080630
  Transmission Date: 20090109
  Serious: Yes (Death)
  Sender: FDA-Public Use
  Company Number: 2008AL004129

PATIENT
  Age: 94 Year
  Sex: Female
  Weight: 57.1532 kg

DRUGS (4)
  1. DIGOXIN [Suspect]
     Indication: ARRHYTHMIA
     Dosage: 0.125MG, PO
     Route: 048
     Dates: start: 20000101, end: 20070112
  2. PLAVIX [Concomitant]
  3. ASPIRIN [Concomitant]
  4. DIOVAN [Concomitant]

REACTIONS (6)
  - CARDIAC DISORDER [None]
  - DIZZINESS [None]
  - HEART RATE IRREGULAR [None]
  - HYPOTENSION [None]
  - MALAISE [None]
  - NAUSEA [None]
